FAERS Safety Report 26188852 (Version 1)
Quarter: 2025Q4

REPORT INFORMATION
  Report Type: Spontaneous
  Country: CA (occurrence: CA)
  Receive Date: 20251222
  Receipt Date: 20251222
  Transmission Date: 20260117
  Serious: Yes (Other)
  Sender: EISAI
  Company Number: CA-Eisai-EC-2025-202085

PATIENT
  Age: 78 Year
  Sex: Female

DRUGS (1)
  1. DAYVIGO [Suspect]
     Active Substance: LEMBOREXANT
     Indication: Insomnia
     Route: 048

REACTIONS (7)
  - Blood pressure increased [Unknown]
  - Crying [Unknown]
  - Emotional disorder [Unknown]
  - Malaise [Unknown]
  - Sleep terror [Unknown]
  - Tremor [Unknown]
  - Vision blurred [Unknown]
